FAERS Safety Report 5488466-X (Version None)
Quarter: 2007Q4

REPORT INFORMATION
  Report Type: 
  Country: None (occurrence: None)
  Receive Date: 20071017
  Receipt Date: 20071009
  Transmission Date: 20080405
  Serious: No
  Sender: FDA-Public Use
  Company Number: FR-JNJFOC-20070705420

PATIENT
  Sex: Male

DRUGS (2)
  1. EPITOMAX [Suspect]
     Indication: STATUS EPILEPTICUS
     Route: 048
  2. TEGRETOL [Concomitant]

REACTIONS (1)
  - DRUG INEFFECTIVE [None]
